FAERS Safety Report 7749149-6 (Version None)
Quarter: 2011Q3

REPORT INFORMATION
  Report Type: 
  Country: None (occurrence: None)
  Receive Date: 20110914
  Receipt Date: 20110908
  Transmission Date: 20111222
  Serious: No
  Sender: FDA-Public Use
  Company Number: US-PFIZER INC-2011211608

PATIENT
  Age: 12 Year
  Sex: Male
  Weight: 40.816 kg

DRUGS (2)
  1. ADVIL LIQUI-GELS [Suspect]
     Dosage: UNK
     Dates: start: 20110901
  2. ADVIL LIQUI-GELS [Suspect]
     Indication: LIGAMENT SPRAIN
     Dosage: 200 MG, UNK
     Route: 048
     Dates: start: 20110902, end: 20110901

REACTIONS (1)
  - APHTHOUS STOMATITIS [None]
